FAERS Safety Report 18535898 (Version 1)
Quarter: 2020Q4

REPORT INFORMATION
  Report Type: Spontaneous
  Country: US (occurrence: US)
  Receive Date: 20201123
  Receipt Date: 20201123
  Transmission Date: 20210114
  Serious: Yes (Other)
  Sender: FDA-Public Use
  Company Number: US-009507513-2011USA011152

PATIENT
  Sex: Male
  Weight: 55 kg

DRUGS (20)
  1. CELEBREX [Concomitant]
     Active Substance: CELECOXIB
     Indication: BACK PAIN
     Dosage: 200 MG, 2X/DAY:BID
     Route: 048
  2. ADVAIR HFA [Concomitant]
     Active Substance: FLUTICASONE PROPIONATE\SALMETEROL XINAFOATE
     Indication: ASTHMA
     Dosage: UNK (100/50) , 1X/DAY:QD
     Route: 055
  3. INDAPAMIDE. [Concomitant]
     Active Substance: INDAPAMIDE
     Indication: HYPERTENSION
     Dosage: 1.25 MG, OTHER (M-W-F)
     Route: 048
  4. CHONDROITIN SULFATE SODIUM (+) GLUCOSAMINE SULFATE [Concomitant]
     Indication: ARTHRITIS
     Dosage: 1 DF, 1X/DAY:QD
     Route: 048
  5. PRINIVIL [Suspect]
     Active Substance: LISINOPRIL
     Indication: HYPERTENSION
     Dosage: 5 MG, 1X/DAY:QD
     Route: 048
     Dates: end: 201507
  6. LIALDA [Suspect]
     Active Substance: MESALAMINE
     Dosage: 2.4 G (TWO 1.2 G TABLETS), 1X/DAY:QD
     Route: 048
     Dates: start: 2015, end: 201509
  7. METFORMIN [Concomitant]
     Active Substance: METFORMIN HYDROCHLORIDE
     Indication: GLUCOSE TOLERANCE IMPAIRED
     Dosage: 500 MG, 2X/DAY:BID
     Route: 048
  8. FISH OIL [Concomitant]
     Active Substance: FISH OIL
     Indication: NUTRITIONAL SUPPLEMENTATION
     Dosage: 1000 IU, 1X/DAY:QD
     Route: 048
  9. PROTONIX [Concomitant]
     Active Substance: PANTOPRAZOLE SODIUM
     Indication: GASTROOESOPHAGEAL REFLUX DISEASE
     Dosage: 40 MG, 1X/DAY:QD
     Route: 048
     Dates: start: 2014
  10. VITAMINS (UNSPECIFIED) [Concomitant]
     Active Substance: VITAMINS
     Indication: NUTRITIONAL SUPPLEMENTATION
     Dosage: 1 DF, 1X/DAY:QD
     Route: 048
  11. LIALDA [Suspect]
     Active Substance: MESALAMINE
     Dosage: 2.4 G (TWO 1.2 G TABLETS), 2X/DAY:BID
     Route: 048
     Dates: start: 201509
  12. ASPIRIN. [Concomitant]
     Active Substance: ASPIRIN
     Indication: ANTICOAGULANT THERAPY
     Dosage: 325 MG, 1X/DAY:QD
     Route: 048
  13. FINASTERIDE. [Concomitant]
     Active Substance: FINASTERIDE
     Indication: BENIGN PROSTATIC HYPERPLASIA
     Dosage: 5 MG, 1X/DAY:QD
     Route: 048
     Dates: start: 2015
  14. BIFIDOBACTERIUM LACTIS [Concomitant]
     Active Substance: BIFIDOBACTERIUM ANIMALIS LACTIS
     Indication: ROUTINE HEALTH MAINTENANCE
     Dosage: 1 DF, 1X/DAY:QD
     Route: 048
     Dates: start: 2014
  15. PYRIDOXINE HYDROCHLORIDE. [Concomitant]
     Active Substance: PYRIDOXINE HYDROCHLORIDE
     Indication: NUTRITIONAL SUPPLEMENTATION
     Dosage: 50 MG, 1X/DAY:QD
     Route: 048
  16. COCONUT OIL [Concomitant]
     Active Substance: COCONUT OIL
     Indication: NUTRITIONAL SUPPLEMENTATION
     Dosage: 1 DF, 2X/DAY:BID
     Route: 065
  17. CANASA [Concomitant]
     Active Substance: MESALAMINE
     Indication: COLITIS ULCERATIVE
     Dosage: 1 G, 1X/DAY:QD (AT BEDTIME)
     Route: 054
  18. LIALDA [Suspect]
     Active Substance: MESALAMINE
     Indication: COLITIS ULCERATIVE
     Dosage: 2.4 G (TWO 1.2 G TABLETS), 2X/DAY:BID
     Route: 048
     Dates: start: 2009, end: 2015
  19. ALLOPURINOL. [Concomitant]
     Active Substance: ALLOPURINOL
     Indication: GOUT
     Dosage: 300 MG, 1X/DAY:QD
     Route: 048
  20. ASCORBIC ACID. [Concomitant]
     Active Substance: ASCORBIC ACID
     Indication: NUTRITIONAL SUPPLEMENTATION
     Dosage: 500 MG, 1X/DAY:QD
     Route: 048

REACTIONS (4)
  - Blood potassium increased [Recovered/Resolved]
  - Colitis ulcerative [Not Recovered/Not Resolved]
  - Blood potassium decreased [Not Recovered/Not Resolved]
  - Inappropriate schedule of product administration [Not Recovered/Not Resolved]

NARRATIVE: CASE EVENT DATE: 2009
